FAERS Safety Report 18831045 (Version 1)
Quarter: 2021Q1

REPORT INFORMATION
  Report Type: Spontaneous
  Country: US (occurrence: US)
  Receive Date: 20210201
  Receipt Date: 20210201
  Transmission Date: 20210419
  Serious: No
  Sender: FDA-Public Use
  Company Number: US-ABBVIE-20K-163-3673934-00

PATIENT
  Age: 45 Year
  Sex: Female
  Weight: 65.83 kg

DRUGS (2)
  1. HUMIRA [Suspect]
     Active Substance: ADALIMUMAB
     Indication: CARDIAC SARCOIDOSIS
     Route: 058
     Dates: start: 20201108
  2. IMURAN (NON?ABBVIE) [Concomitant]
     Indication: CARDIAC SARCOIDOSIS

REACTIONS (2)
  - Device issue [Recovered/Resolved]
  - Off label use [Not Recovered/Not Resolved]

NARRATIVE: CASE EVENT DATE: 20201121
